FAERS Safety Report 4818604-0 (Version None)
Quarter: 2005Q4

REPORT INFORMATION
  Report Type: 
  Country: None (occurrence: None)
  Receive Date: 20051031
  Receipt Date: 20051012
  Transmission Date: 20060501
  Serious: Yes (Death)
  Sender: FDA-Public Use
  Company Number: WAES 0510ITA00021

PATIENT
  Age: 65 Year
  Sex: Male

DRUGS (2)
  1. VIOXX [Suspect]
     Indication: LUNG NEOPLASM MALIGNANT
     Dosage: PO
     Route: 048
     Dates: start: 20040413
  2. CISPLATIN [Concomitant]

REACTIONS (2)
  - CEREBRAL HAEMORRHAGE [None]
  - GENERAL PHYSICAL HEALTH DETERIORATION [None]
